FAERS Safety Report 10467596 (Version 3)
Quarter: 2015Q3

REPORT INFORMATION
  Report Type: Spontaneous
  Country: US (occurrence: US)
  Receive Date: 20140922
  Receipt Date: 20150902
  Transmission Date: 20151125
  Serious: Yes (Other)
  Sender: FDA-Public Use
  Company Number: US-GLAXOSMITHKLINE-A1089478A

PATIENT
  Sex: Female

DRUGS (5)
  1. LAMICTAL [Suspect]
     Active Substance: LAMOTRIGINE
     Indication: SEIZURE
     Dosage: 200 MG, DAILY INCREASED TO 600 MG DAILY
     Route: 048
  2. CELEXA [Concomitant]
     Active Substance: CITALOPRAM HYDROBROMIDE
  3. LAMICTAL [Suspect]
     Active Substance: LAMOTRIGINE
     Dosage: 600 MG, U
     Route: 048
     Dates: start: 2011
  4. LAMICTAL [Suspect]
     Active Substance: LAMOTRIGINE
     Indication: EPILEPSY
     Dosage: 800 MG, U
     Route: 048
     Dates: start: 2011
  5. LAMOTRIGINE. [Suspect]
     Active Substance: LAMOTRIGINE
     Indication: SEIZURE
     Dosage: 600 MG DAILY
     Route: 065

REACTIONS (4)
  - Amnesia [Unknown]
  - Seizure [Unknown]
  - Disorientation [Unknown]
  - Drug ineffective [Unknown]
